FAERS Safety Report 12529250 (Version 1)
Quarter: 2016Q3

REPORT INFORMATION
  Report Type: Spontaneous
  Country: US (occurrence: US)
  Receive Date: 20160705
  Receipt Date: 20160705
  Transmission Date: 20161109
  Serious: No
  Sender: FDA-Public Use
  Company Number: US-TEIKOKU PHARMA USA-TPU2016-00400

PATIENT
  Age: 84 Year
  Sex: Female
  Weight: 72.64 kg

DRUGS (2)
  1. LIDOCAINE PATCH [Suspect]
     Active Substance: LIDOCAINE
     Indication: ARTHRALGIA
     Dosage: ONE-HALF PATCH TOPICALLY ON KNEE AND ONE-HALF PATCH ON BASE OF SPINE FOR 12 HOURS ON AND 12 HOURS OF
     Route: 061
  2. LIDOCAINE PATCH [Suspect]
     Active Substance: LIDOCAINE
     Indication: PRODUCT USED FOR UNKNOWN INDICATION

REACTIONS (3)
  - Nervousness [Unknown]
  - Middle insomnia [Unknown]
  - Emotional distress [Unknown]

NARRATIVE: CASE EVENT DATE: 201605
